FAERS Safety Report 7795064-1 (Version None)
Quarter: 2011Q4

REPORT INFORMATION
  Report Type: 
  Country: None (occurrence: None)
  Receive Date: 20111004
  Receipt Date: 20110922
  Transmission Date: 20120403
  Serious: Yes (Death, Hospitalization, Other)
  Sender: FDA-Public Use
  Company Number: GR-JNJFOC-20110400797

PATIENT
  Age: 53 Year
  Sex: Male
  Weight: 117 kg

DRUGS (6)
  1. INFLIXIMAB, RECOMBINANT [Suspect]
     Indication: PSORIASIS
     Dosage: 8 DOSES
     Route: 042
     Dates: end: 20110215
  2. INFLIXIMAB, RECOMBINANT [Suspect]
     Route: 042
     Dates: start: 20100413
  3. METFORMIN HCL [Concomitant]
     Indication: DIABETES MELLITUS
     Route: 048
  4. METFORMIN HCL [Concomitant]
     Indication: HYPERGLYCAEMIA
     Route: 048
  5. METHOTREXATE [Concomitant]
     Indication: PSORIASIS
     Route: 048
     Dates: start: 20110107
  6. ANTI-HYPERTENSIVE [Concomitant]
     Indication: HYPERTENSION

REACTIONS (1)
  - NON-SMALL CELL LUNG CANCER [None]
